FAERS Safety Report 6191076-2 (Version None)
Quarter: 2009Q2

REPORT INFORMATION
  Report Type: 
  Country: None (occurrence: None)
  Receive Date: 20090513
  Receipt Date: 20090513
  Transmission Date: 20091009
  Serious: Yes (Hospitalization, Disabling)
  Sender: FDA-Public Use
  Company Number: None

PATIENT
  Sex: Male
  Weight: 80.7403 kg

DRUGS (1)
  1. DIGOXIN [Suspect]
     Indication: TACHYCARDIA
     Dosage: 0.25 1 X  DAY ORAL 8-10 YRS UNTIL RECALLED
     Route: 048

REACTIONS (5)
  - BLOOD CREATINE INCREASED [None]
  - CARDIOACTIVE DRUG LEVEL INCREASED [None]
  - CONTUSION [None]
  - NEPHROLITHIASIS [None]
  - TACHYCARDIA [None]
